FAERS Safety Report 7638579-9 (Version None)
Quarter: 2011Q3

REPORT INFORMATION
  Report Type: 
  Country: None (occurrence: None)
  Receive Date: 20110727
  Receipt Date: 20110719
  Transmission Date: 20111222
  Serious: Yes (Hospitalization)
  Sender: FDA-Public Use
  Company Number: US-ASTELLAS-2011US002425

PATIENT
  Sex: Male

DRUGS (2)
  1. GEMZAR [Concomitant]
     Indication: PRODUCT USED FOR UNKNOWN INDICATION
     Dosage: UNK
     Route: 065
  2. ERLOTINIB HYDROCHLORIDE [Suspect]
     Indication: PANCREATIC CARCINOMA
     Dosage: 100 MG, UID/QD
     Route: 048
     Dates: start: 20110420

REACTIONS (8)
  - DYSGEUSIA [None]
  - CARDIAC PACEMAKER INSERTION [None]
  - ILEOSTOMY CLOSURE [None]
  - HAEMORRHAGE [None]
  - HEART RATE IRREGULAR [None]
  - SPLENIC RUPTURE [None]
  - BLOOD COUNT ABNORMAL [None]
  - OEDEMA PERIPHERAL [None]
